FAERS Safety Report 20512375 (Version 2)
Quarter: 2022Q1

REPORT INFORMATION
  Report Type: Spontaneous
  Country: US (occurrence: US)
  Receive Date: 20220224
  Receipt Date: 20220301
  Transmission Date: 20220423
  Serious: Yes (Other)
  Sender: FDA-Public Use
  Company Number: US-PFIZER INC-202200306559

PATIENT
  Age: 68 Year
  Sex: Male
  Weight: 95.2 kg

DRUGS (4)
  1. TIKOSYN [Suspect]
     Active Substance: DOFETILIDE
     Indication: Atrial fibrillation
     Dosage: 500 UG, 2X/DAY (TAKE 1 CAPSULE BY MOUTH EVERY 12 HOURS)
     Route: 048
     Dates: start: 20211111
  2. LIPITOR [Suspect]
     Active Substance: ATORVASTATIN CALCIUM
     Dosage: 40 MG, 1X/DAY (TAKE 1 TABLET BY MOUTH NIGHTLY)
     Route: 048
     Dates: start: 20211111
  3. DILTIAZEM [Concomitant]
     Active Substance: DILTIAZEM
     Dosage: UNK
  4. DILTIAZEM [Concomitant]
     Active Substance: DILTIAZEM
     Dosage: 120 MG, 1X/DAY

REACTIONS (8)
  - Cardiac failure congestive [Unknown]
  - Blood urine present [Unknown]
  - Peripheral coldness [Unknown]
  - Epistaxis [Unknown]
  - Fatigue [Unknown]
  - Headache [Unknown]
  - Dyspnoea [Unknown]
  - Dizziness postural [Unknown]
